FAERS Safety Report 12726823 (Version 4)
Quarter: 2019Q1

REPORT INFORMATION
  Report Type: Spontaneous
  Country: US (occurrence: US)
  Receive Date: 20160908
  Receipt Date: 20190213
  Transmission Date: 20190417
  Serious: Yes (Other)
  Sender: FDA-Public Use
  Company Number: US-ASTRAZENECA-2016SE93917

PATIENT
  Age: 75 Year
  Sex: Female
  Weight: 90.3 kg

DRUGS (3)
  1. LANTUS [Concomitant]
     Active Substance: INSULIN GLARGINE
     Indication: TYPE 2 DIABETES MELLITUS
     Dosage: 22 UNITS, 32 AT NIGHT
     Route: 058
     Dates: start: 2012
  2. BYDUREON BCISE [Suspect]
     Active Substance: EXENATIDE
     Indication: TYPE 2 DIABETES MELLITUS
     Route: 058
     Dates: start: 201810
  3. BYDUREON [Suspect]
     Active Substance: EXENATIDE
     Indication: TYPE 2 DIABETES MELLITUS
     Route: 058
     Dates: start: 201402, end: 201810

REACTIONS (11)
  - Blood glucose abnormal [Not Recovered/Not Resolved]
  - Optic ischaemic neuropathy [Not Recovered/Not Resolved]
  - Hypotension [Unknown]
  - Amnesia [Not Recovered/Not Resolved]
  - Injection site nodule [Not Recovered/Not Resolved]
  - Device leakage [Unknown]
  - Cerebrovascular accident [Recovered/Resolved]
  - Blindness unilateral [Unknown]
  - Altered visual depth perception [Not Recovered/Not Resolved]
  - Device malfunction [Unknown]
  - Incorrect dose administered [Unknown]

NARRATIVE: CASE EVENT DATE: 2015
